FAERS Safety Report 5143539-6 (Version None)
Quarter: 2006Q4

REPORT INFORMATION
  Report Type: 
  Country: None (occurrence: None)
  Receive Date: 20061103
  Receipt Date: 20060711
  Transmission Date: 20070319
  Serious: Yes (Hospitalization)
  Sender: FDA-Public Use
  Company Number: KR-SANOFI-SYNTHELABO-A01200605386

PATIENT
  Age: 75 Year
  Sex: Male

DRUGS (3)
  1. LEUCOVORIN CALCIUM [Suspect]
     Indication: GASTRIC CANCER
     Route: 042
  2. FLUOROURACIL [Suspect]
     Indication: GASTRIC CANCER
     Route: 042
  3. OXALIPLATIN [Suspect]
     Indication: GASTRIC CANCER
     Route: 042

REACTIONS (3)
  - DIFFUSE ALVEOLAR DAMAGE [None]
  - DYSPNOEA [None]
  - INTERSTITIAL LUNG DISEASE [None]
